FAERS Safety Report 4642927-1 (Version None)
Quarter: 2005Q2

REPORT INFORMATION
  Report Type: 
  Country: None (occurrence: None)
  Receive Date: 20050421
  Receipt Date: 20050407
  Transmission Date: 20051028
  Serious: No
  Sender: FDA-Public Use
  Company Number: 05P-167-0297202-00

PATIENT
  Sex: Female

DRUGS (3)
  1. MERIDIA [Suspect]
     Dosage: ORAL
     Dates: end: 20041201
  2. ORAL CONTRACEPTIVE NOS [Concomitant]
  3. SALBUTAMOL [Concomitant]

REACTIONS (3)
  - ABORTION INDUCED [None]
  - DRUG EXPOSURE DURING PREGNANCY [None]
  - MULTIPLE CONGENITAL ABNORMALITIES [None]
